FAERS Safety Report 12918498 (Version 1)
Quarter: 2016Q4

REPORT INFORMATION
  Report Type: Spontaneous
  Country: US (occurrence: US)
  Receive Date: 20161107
  Receipt Date: 20161107
  Transmission Date: 20170207
  Serious: No
  Sender: FDA-Public Use
  Company Number: US-AMGEN-USASP2016147268

PATIENT
  Age: 62 Year
  Sex: Male

DRUGS (5)
  1. SIMVASTATIN. [Concomitant]
     Active Substance: SIMVASTATIN
     Dosage: 80 MG, UNK
  2. MOMETASONE [Concomitant]
     Active Substance: MOMETASONE
     Dosage: 0.1 %, UNK
  3. OMEPRAZOLE. [Concomitant]
     Active Substance: OMEPRAZOLE
     Dosage: 20 MG, UNK
  4. ENBREL [Suspect]
     Active Substance: ETANERCEPT
     Indication: PRODUCT USED FOR UNKNOWN INDICATION
     Dosage: 50 MG, QWK
     Route: 058
     Dates: start: 201604
  5. GAVILYTE N [Concomitant]
     Dosage: UNK

REACTIONS (1)
  - Furuncle [Not Recovered/Not Resolved]

NARRATIVE: CASE EVENT DATE: 201610
